FAERS Safety Report 5994900-9 (Version None)
Quarter: 2008Q4

REPORT INFORMATION
  Report Type: 
  Country: None (occurrence: None)
  Receive Date: 20081212
  Receipt Date: 20081205
  Transmission Date: 20090506
  Serious: Yes (Other)
  Sender: FDA-Public Use
  Company Number: JP-JNJFOC-20080900071

PATIENT
  Sex: Female
  Weight: 46 kg

DRUGS (7)
  1. ITRIZOLE [Suspect]
     Indication: ANTIFUNGAL PROPHYLAXIS
     Route: 041
  2. IDARUBICIN HYDROCHLORIDE [Interacting]
     Indication: DRUG USE FOR UNKNOWN INDICATION
     Route: 042
  3. CYLOCIDE [Interacting]
     Indication: DRUG USE FOR UNKNOWN INDICATION
     Route: 042
  4. SOLDEM 3A [Concomitant]
     Indication: ACUTE MYELOID LEUKAEMIA
     Route: 041
  5. ZYLORIC [Concomitant]
     Indication: PROPHYLAXIS
     Route: 048
  6. FAMOTIDINE [Concomitant]
     Indication: PROPHYLAXIS
     Route: 048
  7. CIPROXAN [Concomitant]
     Indication: PROPHYLAXIS
     Route: 048

REACTIONS (2)
  - CATHETER RELATED COMPLICATION [None]
  - DRUG INTERACTION [None]
